FAERS Safety Report 17037025 (Version 4)
Quarter: 2021Q4

REPORT INFORMATION
  Report Type: Spontaneous
  Country: US (occurrence: US)
  Receive Date: 20191115
  Receipt Date: 20211125
  Transmission Date: 20220303
  Serious: Yes (Other)
  Sender: FDA-Public Use
  Company Number: US-PFIZER INC-2019489985

PATIENT
  Age: 68 Year
  Sex: Male
  Weight: 58.97 kg

DRUGS (2)
  1. METHOTREXATE SODIUM [Suspect]
     Active Substance: METHOTREXATE SODIUM
     Dosage: 2.5 MG, UNK
     Dates: end: 2019
  2. FOLIC ACID [Concomitant]
     Active Substance: FOLIC ACID
     Dosage: 1 MG, DAILY

REACTIONS (4)
  - Neoplasm malignant [Unknown]
  - Drug ineffective [Unknown]
  - Alopecia [Unknown]
  - Visual impairment [Unknown]
